FAERS Safety Report 23297142 (Version 2)
Quarter: 2023Q4

REPORT INFORMATION
  Report Type: Spontaneous
  Country: US (occurrence: US)
  Receive Date: 20231214
  Receipt Date: 20231229
  Transmission Date: 20240110
  Serious: Yes (Other)
  Sender: FDA-Public Use
  Company Number: US-AMRYT PHARMACEUTICALS DAC-AEGR006771

PATIENT
  Sex: Male
  Weight: 111.11 kg

DRUGS (1)
  1. MYCAPSSA [Suspect]
     Active Substance: OCTREOTIDE
     Indication: Acromegaly
     Dosage: 20 MILLIGRAM, BID
     Route: 048
     Dates: start: 202306, end: 202308

REACTIONS (2)
  - Cholecystitis [Recovered/Resolved with Sequelae]
  - Cholelithiasis [Recovered/Resolved with Sequelae]
